FAERS Safety Report 17597594 (Version 1)
Quarter: 2020Q1

REPORT INFORMATION
  Report Type: Spontaneous
  Country: US (occurrence: US)
  Receive Date: 20200330
  Receipt Date: 20200330
  Transmission Date: 20200409
  Serious: No
  Sender: FDA-Public Use
  Company Number: US-SA-2020SA077294

PATIENT
  Age: 61 Year
  Sex: Male
  Weight: 77.1 kg

DRUGS (14)
  1. MIRALAX [Concomitant]
     Active Substance: POLYETHYLENE GLYCOL 3350
  2. EPINEPHRINE. [Concomitant]
     Active Substance: EPINEPHRINE
  3. ASPIRIN [ACETYLSALICYLIC ACID] [Concomitant]
     Active Substance: ASPIRIN
  4. CIALIS [Concomitant]
     Active Substance: TADALAFIL
  5. MULTIVITAMINS [VITAMINS NOS] [Concomitant]
     Active Substance: VITAMINS
  6. CALCIUM [Concomitant]
     Active Substance: CALCIUM
  7. LOSARTAN. [Concomitant]
     Active Substance: LOSARTAN
  8. FABRAZYME [Suspect]
     Active Substance: AGALSIDASE BETA
     Indication: FABRY^S DISEASE
     Dosage: 80 MG
     Route: 042
     Dates: start: 20170221
  9. VITAMIN D3 [Concomitant]
     Active Substance: CHOLECALCIFEROL
  10. MAGNESIUM [Concomitant]
     Active Substance: MAGNESIUM
  11. FINASTERIDE. [Concomitant]
     Active Substance: FINASTERIDE
  12. NORMAL SALINE [Concomitant]
     Active Substance: SODIUM CHLORIDE
  13. AMITRIPTYLINE [Concomitant]
     Active Substance: AMITRIPTYLINE
  14. STERILE WATER [Concomitant]
     Active Substance: WATER

REACTIONS (6)
  - Product dose omission [Unknown]
  - Productive cough [Unknown]
  - Nasopharyngitis [Unknown]
  - Secretion discharge [Unknown]
  - Bronchitis [Unknown]
  - Headache [Unknown]

NARRATIVE: CASE EVENT DATE: 20200225
